FAERS Safety Report 10314977 (Version 1)
Quarter: 2014Q3

REPORT INFORMATION
  Report Type: Spontaneous
  Country: PT (occurrence: PT)
  Receive Date: 20140718
  Receipt Date: 20140718
  Transmission Date: 20150326
  Serious: Yes (Other)
  Sender: FDA-Public Use
  Company Number: PT-ASTRAZENECA-2014SE50024

PATIENT
  Age: 29956 Day
  Sex: Female
  Weight: 50 kg

DRUGS (8)
  1. ALZEN SR [Suspect]
     Active Substance: QUETIAPINE FUMARATE
     Indication: COGNITIVE DISORDER
     Route: 048
     Dates: start: 20140507, end: 20140512
  2. ALZEN SR [Suspect]
     Active Substance: QUETIAPINE FUMARATE
     Indication: COGNITIVE DISORDER
     Route: 048
  3. SERTRALINE [Concomitant]
     Active Substance: SERTRALINE HYDROCHLORIDE
     Indication: PRESENILE DEMENTIA
     Route: 048
     Dates: start: 2010
  4. CITICOLINA [Concomitant]
     Indication: COGNITIVE DISORDER
     Route: 048
     Dates: start: 2010
  5. ALPRAZOLAM. [Concomitant]
     Active Substance: ALPRAZOLAM
     Indication: PRESENILE DEMENTIA
     Route: 048
     Dates: start: 2010
  6. PANTOPRAZOLE [Concomitant]
     Active Substance: PANTOPRAZOLE SODIUM
     Indication: GASTRITIS
     Route: 048
     Dates: start: 2010
  7. TRAZODONE [Concomitant]
     Active Substance: TRAZODONE HYDROCHLORIDE
     Indication: PRESENILE DEMENTIA
     Route: 048
     Dates: start: 2010
  8. RIVASTIGMINA [Concomitant]
     Indication: PRESENILE DEMENTIA
     Route: 048
     Dates: start: 20140503

REACTIONS (1)
  - Toxic skin eruption [Recovered/Resolved]

NARRATIVE: CASE EVENT DATE: 20140508
